FAERS Safety Report 23033712 (Version 2)
Quarter: 2023Q4

REPORT INFORMATION
  Report Type: Spontaneous
  Country: SI (occurrence: SI)
  Receive Date: 20231005
  Receipt Date: 20231117
  Transmission Date: 20240109
  Serious: Yes (Life-Threatening, Hospitalization)
  Sender: FDA-Public Use
  Company Number: SI-TEVA-2023-SI-2931560

PATIENT
  Age: 70 Year
  Sex: Female

DRUGS (9)
  1. QUETIAPINE [Interacting]
     Active Substance: QUETIAPINE
     Indication: Psychotic symptom
     Dosage: 50 MILLIGRAM DAILY; IN THE AFTERNOON
     Route: 065
  2. QUETIAPINE [Interacting]
     Active Substance: QUETIAPINE
     Indication: Depression
     Dosage: 100 MILLIGRAM DAILY; IN THE EVENING
     Route: 065
  3. SERTRALINE [Interacting]
     Active Substance: SERTRALINE HYDROCHLORIDE
     Indication: Depression
     Dosage: 75 MILLIGRAM DAILY; IN THE MORNING
     Route: 065
  4. SERTRALINE [Interacting]
     Active Substance: SERTRALINE HYDROCHLORIDE
     Dosage: 150 MILLIGRAM DAILY; IN THE MORNING FOR ONE WEEK
     Route: 065
  5. TRAZODONE [Interacting]
     Active Substance: TRAZODONE HYDROCHLORIDE
     Indication: Insomnia
     Dosage: 100 MILLIGRAM DAILY; IN THE EVENING
     Route: 065
  6. OLANZAPINE [Concomitant]
     Active Substance: OLANZAPINE
     Indication: Psychotic symptom
     Dosage: 15 MILLIGRAM DAILY; IN THE EVENING
     Route: 065
  7. OLANZAPINE [Concomitant]
     Active Substance: OLANZAPINE
     Indication: Depression
  8. ALPRAZOLAM [Concomitant]
     Active Substance: ALPRAZOLAM
     Indication: Anxiety
     Dosage: .25 MILLIGRAM DAILY; IN THE MORNING
     Route: 065
  9. ALPRAZOLAM [Concomitant]
     Active Substance: ALPRAZOLAM
     Dosage: 0.25 MG IF NECESSARY UP TO 3 TIMES A DAY
     Route: 065

REACTIONS (2)
  - Serotonin syndrome [Recovered/Resolved]
  - Drug interaction [Recovered/Resolved]
